FAERS Safety Report 7134520-6 (Version None)
Quarter: 2010Q4

REPORT INFORMATION
  Report Type: 
  Country: None (occurrence: None)
  Receive Date: 20101130
  Receipt Date: 20101130
  Transmission Date: 20110411
  Serious: Yes (Other)
  Sender: FDA-Public Use
  Company Number: None

PATIENT
  Age: 22 Year
  Sex: Female
  Weight: 93.441 kg

DRUGS (2)
  1. PROPOXYPHENE HYDROCHLORIDE [Suspect]
     Indication: ANALGESIC THERAPY
     Dosage: 1-2 TABLETS EVERY 6 HOURS PO
     Route: 048
     Dates: start: 20101009, end: 20101011
  2. PROPOXYPHENE HYDROCHLORIDE [Suspect]
     Indication: TOOTH EXTRACTION
     Dosage: 1-2 TABLETS EVERY 6 HOURS PO
     Route: 048
     Dates: start: 20101009, end: 20101011

REACTIONS (5)
  - DIZZINESS [None]
  - DRUG EXPOSURE DURING PREGNANCY [None]
  - DRUG INEFFECTIVE [None]
  - HALLUCINATION [None]
  - INADEQUATE ANALGESIA [None]
